FAERS Safety Report 15472105 (Version 2)
Quarter: 2020Q3

REPORT INFORMATION
  Report Type: Spontaneous
  Country: JP (occurrence: JP)
  Receive Date: 20181008
  Receipt Date: 20200911
  Transmission Date: 20201102
  Serious: Yes (Death, Hospitalization, Other)
  Sender: FDA-Public Use
  Company Number: JP-TEVA-201712_00001006

PATIENT
  Age: 81 Year
  Sex: Male

DRUGS (9)
  1. FLUCONAZOLE. [Concomitant]
     Active Substance: FLUCONAZOLE
     Dosage: DOSAGE IS UNKNOWN
     Route: 065
     Dates: start: 20170719, end: 20180120
  2. PONATINIB HYDROCHLORIDE [Suspect]
     Active Substance: PONATINIB
     Dosage: 15 MILLIGRAM DAILY;
     Route: 048
     Dates: start: 20170906, end: 20170919
  3. PONATINIB HYDROCHLORIDE [Suspect]
     Active Substance: PONATINIB
     Route: 048
     Dates: start: 20170920, end: 20170926
  4. PREDNISOLONE TABLETS 5MG. [Suspect]
     Active Substance: PREDNISOLONE
     Indication: PRODUCT USED FOR UNKNOWN INDICATION
     Dosage: 15 MILLIGRAM DAILY;
     Route: 065
     Dates: start: 20170823
  5. PONATINIB HYDROCHLORIDE [Suspect]
     Active Substance: PONATINIB
     Indication: ACUTE LYMPHOCYTIC LEUKAEMIA
     Dosage: 15 MILLIGRAM DAILY;
     Route: 048
     Dates: start: 20170823, end: 20170825
  6. AZOSEMIDE [Suspect]
     Active Substance: AZOSEMIDE
     Indication: PRODUCT USED FOR UNKNOWN INDICATION
     Route: 048
     Dates: start: 20170822
  7. PONATINIB HYDROCHLORIDE [Suspect]
     Active Substance: PONATINIB
     Dosage: 15 MILLIGRAM DAILY;
     Route: 048
     Dates: start: 20170927, end: 20171003
  8. PONATINIB HYDROCHLORIDE [Suspect]
     Active Substance: PONATINIB
     Route: 048
     Dates: start: 20170831, end: 20170905
  9. PONATINIB HYDROCHLORIDE [Suspect]
     Active Substance: PONATINIB
     Dosage: 15 MILLIGRAM DAILY;
     Route: 048
     Dates: start: 20171031, end: 20171108

REACTIONS (8)
  - Embolism venous [Recovering/Resolving]
  - Platelet count decreased [Recovered/Resolved]
  - Disseminated intravascular coagulation [Recovered/Resolved]
  - Acute lymphocytic leukaemia [Fatal]
  - White blood cell count decreased [Recovered/Resolved]
  - Renal disorder [Recovering/Resolving]
  - Leukaemia [Recovering/Resolving]
  - Platelet count decreased [Not Recovered/Not Resolved]

NARRATIVE: CASE EVENT DATE: 20170824
